FAERS Safety Report 17639062 (Version 1)
Quarter: 2020Q2

REPORT INFORMATION
  Report Type: Spontaneous
  Country: US (occurrence: US)
  Receive Date: 20200407
  Receipt Date: 20200407
  Transmission Date: 20200713
  Serious: Yes (Other)
  Sender: FDA-Public Use
  Company Number: US-SA-2020SA081793

PATIENT
  Sex: Female

DRUGS (2)
  1. DULCOLAX PINK [Suspect]
     Active Substance: BISACODYL
     Dosage: UNK
     Dates: start: 2014, end: 2014
  2. DULCOLAX PINK [Suspect]
     Active Substance: BISACODYL
     Dosage: UNK
     Dates: start: 2020

REACTIONS (5)
  - Hyperhidrosis [Unknown]
  - Loss of consciousness [Unknown]
  - Deafness [Unknown]
  - Muscle spasms [Unknown]
  - Tinnitus [Unknown]

NARRATIVE: CASE EVENT DATE: 2020
